FAERS Safety Report 4470169-1 (Version None)
Quarter: 2004Q3

REPORT INFORMATION
  Report Type: 
  Country: None (occurrence: None)
  Receive Date: 20040910
  Receipt Date: 20040730
  Transmission Date: 20050211
  Serious: No
  Sender: FDA-Public Use
  Company Number: 2004227063US

PATIENT
  Age: 83 Year
  Sex: Male

DRUGS (10)
  1. BEXTRA [Suspect]
     Indication: ABDOMINAL PAIN
     Dosage: QD, ORAL
     Route: 048
     Dates: start: 20040718
  2. SINEMET [Concomitant]
  3. REQUIP [Concomitant]
  4. AMIODARONE HCL [Concomitant]
  5. MIDODRINE (MIDODRINE) [Concomitant]
  6. MICRO-K [Concomitant]
  7. AZOPT [Concomitant]
  8. XALATAN [Concomitant]
  9. VITAMIN C [Concomitant]
  10. MIRALAX [Concomitant]

REACTIONS (2)
  - DEMENTIA [None]
  - UNEVALUABLE EVENT [None]
